FAERS Safety Report 13287219 (Version 1)
Quarter: 2017Q1

REPORT INFORMATION
  Report Type: Spontaneous
  Country: CN (occurrence: CN)
  Receive Date: 20170302
  Receipt Date: 20170302
  Transmission Date: 20170428
  Serious: Yes (Hospitalization, Other)
  Sender: FDA-Public Use
  Company Number: CN-ALVOGEN-2017-ALVOGEN-091655

PATIENT
  Age: 81 Year
  Sex: Male

DRUGS (2)
  1. ACETYLCYSTEINE. [Suspect]
     Active Substance: ACETYLCYSTEINE
     Indication: RESPIRATORY SYMPTOM
     Route: 048
  2. CEFMINOX [Concomitant]
     Active Substance: CEFMINOX SODIUM
     Indication: RESPIRATORY SYMPTOM

REACTIONS (3)
  - Oesophageal ulcer [Recovered/Resolved]
  - Chest pain [Recovered/Resolved]
  - Oesophagitis [Recovered/Resolved]
